FAERS Safety Report 8977006 (Version 1)
Quarter: 2012Q4

REPORT INFORMATION
  Report Type: 
  Country: US (occurrence: US)
  Receive Date: 20121220
  Receipt Date: 20121220
  Transmission Date: 20130627
  Serious: No
  Sender: FDA-Public Use
  Company Number: US-GLAXOSMITHKLINE-A0990597A

PATIENT
  Age: 77 Year
  Sex: Female
  Weight: 53.6 kg

DRUGS (3)
  1. SORIATANE [Suspect]
     Indication: PROPHYLACTIC CHEMOTHERAPY
     Dosage: 10MG Per day
     Route: 048
     Dates: start: 20120724, end: 20120822
  2. 5-FU [Concomitant]
  3. KENALOG [Concomitant]

REACTIONS (4)
  - Muscle spasms [Recovered/Resolved]
  - Pain in extremity [Recovered/Resolved]
  - Dyskinesia [Recovered/Resolved]
  - Muscle contractions involuntary [Unknown]
